FAERS Safety Report 7146175-5 (Version None)
Quarter: 2010Q4

REPORT INFORMATION
  Report Type: 
  Country: None (occurrence: None)
  Receive Date: 20101208
  Receipt Date: 20101125
  Transmission Date: 20110411
  Serious: Yes (Disabling, Other)
  Sender: FDA-Public Use
  Company Number: PHHY2010DK72177

PATIENT
  Sex: Female

DRUGS (4)
  1. DIOVAN [Suspect]
     Indication: BLOOD PRESSURE DIASTOLIC
     Dosage: 80 MG
     Dates: start: 20050525
  2. DIOVAN [Interacting]
     Indication: HYPERTENSION
  3. XYLOPLYIN DENTAL ADRENALIN [Interacting]
     Indication: ANAESTHESIA
     Dosage: 20 MG/ML/12.5 ?G/ML
  4. AMLODIPINE [Concomitant]
     Dosage: 5 MG

REACTIONS (28)
  - AMNESIA [None]
  - APICAL GRANULOMA [None]
  - AUTONOMIC NEUROPATHY [None]
  - BLOOD PRESSURE DECREASED [None]
  - BRAIN INJURY [None]
  - COGNITIVE DISORDER [None]
  - CONFUSIONAL STATE [None]
  - DENTAL OPERATION [None]
  - DEPRESSED LEVEL OF CONSCIOUSNESS [None]
  - DIPLOPIA [None]
  - DIZZINESS [None]
  - DRUG INTERACTION [None]
  - DYSPHAGIA [None]
  - DYSPNOEA [None]
  - FEELING ABNORMAL [None]
  - FEELING HOT [None]
  - HEADACHE [None]
  - HEART RATE INCREASED [None]
  - HYPERACUSIS [None]
  - HYPERSENSITIVITY [None]
  - INFECTION [None]
  - MUSCLE DISORDER [None]
  - OSTEITIS [None]
  - PAIN IN EXTREMITY [None]
  - PALPITATIONS [None]
  - SPEECH DISORDER [None]
  - TINNITUS [None]
  - VISUAL ACUITY REDUCED [None]
